FAERS Safety Report 7654204-5 (Version None)
Quarter: 2011Q3

REPORT INFORMATION
  Report Type: 
  Country: None (occurrence: None)
  Receive Date: 20110802
  Receipt Date: 20110802
  Transmission Date: 20111222
  Serious: No
  Sender: FDA-Public Use
  Company Number: None

PATIENT
  Sex: Male
  Weight: 87.0906 kg

DRUGS (1)
  1. PRILOSEC [Suspect]
     Indication: BARRETT'S OESOPHAGUS
     Dosage: PRILOSEC 20MG 1 BID ORAL - TABLET
     Route: 048
     Dates: start: 20110217, end: 20110713

REACTIONS (1)
  - DRUG EFFECT DECREASED [None]
